FAERS Safety Report 8662512 (Version 2)
Quarter: 2013Q2

REPORT INFORMATION
  Report Type: Spontaneous
  Country: US (occurrence: US)
  Receive Date: 20120712
  Receipt Date: 20130603
  Transmission Date: 20140414
  Serious: Yes (Other)
  Sender: FDA-Public Use
  Company Number: US-PFIZER INC-2012165091

PATIENT
  Age: 45 Year
  Sex: Female

DRUGS (9)
  1. CHANTIX [Suspect]
     Dosage: STARTING MONTHLY PACK, UNK
     Dates: start: 20090709, end: 20090806
  2. BUTALBITAL APAP CAFFEINE [Concomitant]
     Dosage: 325 MG, UNK
     Dates: start: 20090706
  3. NASONEX [Concomitant]
     Dosage: 50 UG, UNK
     Route: 045
     Dates: start: 20090706
  4. HYDROCODONE-APAP [Concomitant]
     Dosage: UNK
     Dates: start: 20090706
  5. IBUPROFEN [Concomitant]
     Dosage: 800 MG, UNK
     Dates: start: 20090706
  6. TRIAMTERENE-HCTZ [Concomitant]
     Dosage: 37.5-25MG, UNK
     Dates: start: 20090708
  7. METHOCARBAMOL [Concomitant]
     Dosage: 500 MG, UNK
     Dates: start: 20090716
  8. CETIRIZINE [Concomitant]
     Dosage: 10 MG, UNK
     Dates: start: 20090716
  9. OMEPRAZOLE [Concomitant]
     Dosage: 20 MG, UNK
     Dates: start: 20090716

REACTIONS (4)
  - Suicidal ideation [Unknown]
  - Depression [Unknown]
  - Aggression [Unknown]
  - Anger [Unknown]
